FAERS Safety Report 6982932-3 (Version None)
Quarter: 2010Q3

REPORT INFORMATION
  Report Type: 
  Country: None (occurrence: None)
  Receive Date: 20100914
  Receipt Date: 20100422
  Transmission Date: 20110219
  Serious: Yes (Other)
  Sender: FDA-Public Use
  Company Number: US-PFIZER INC-2010051679

PATIENT
  Sex: Male
  Weight: 81.633 kg

DRUGS (5)
  1. LYRICA [Suspect]
     Indication: EPILEPSY
     Dosage: 50 MG, 1X/DAY
     Route: 048
     Dates: start: 20100331
  2. LYRICA [Suspect]
     Indication: CONVULSION
     Dosage: 50 MG, 2X/DAY
     Route: 048
  3. KEPPRA [Concomitant]
     Indication: CONVULSION
     Dosage: UNK
  4. TEGRETOL [Concomitant]
     Indication: CONVULSION
     Dosage: UNK
  5. LAMICTAL [Concomitant]
     Indication: CONVULSION
     Dosage: UNK

REACTIONS (2)
  - CONVULSION [None]
  - RASH PRURITIC [None]
